FAERS Safety Report 5892409-4 (Version None)
Quarter: 2008Q3

REPORT INFORMATION
  Report Type: 
  Country: None (occurrence: None)
  Receive Date: 20080919
  Receipt Date: 20080919
  Transmission Date: 20090109
  Serious: Yes (Life-Threatening)
  Sender: FDA-Public Use
  Company Number: None

PATIENT
  Sex: Female
  Weight: 63.5036 kg

DRUGS (1)
  1. VERAMYST [Suspect]
     Indication: POSTNASAL DRIP
     Dosage: 27.5 MCG 2 X PER DAY NASAL
     Route: 045
     Dates: start: 20080912, end: 20080916

REACTIONS (1)
  - ANTICOAGULATION DRUG LEVEL ABOVE THERAPEUTIC [None]
